FAERS Safety Report 6137568-3 (Version None)
Quarter: 2009Q1

REPORT INFORMATION
  Report Type: 
  Country: None (occurrence: None)
  Receive Date: 20090331
  Receipt Date: 20090319
  Transmission Date: 20090719
  Serious: Yes (Other)
  Sender: FDA-Public Use
  Company Number: FR-RANBAXY-2009RR-22953

PATIENT
  Age: 39 Year
  Sex: Female

DRUGS (2)
  1. SIMVASTATIN [Suspect]
     Indication: WEIGHT DECREASED
     Dosage: 60 MG, QD
  2. SIMVASTATIN [Suspect]
     Dosage: 100 MG, QD

REACTIONS (4)
  - COMPARTMENT SYNDROME [None]
  - LIVER INJURY [None]
  - RENAL FAILURE ACUTE [None]
  - RHABDOMYOLYSIS [None]
